FAERS Safety Report 9820385 (Version 1)
Quarter: 2014Q1

REPORT INFORMATION
  Report Type: Spontaneous
  Country: US (occurrence: None)
  Receive Date: 20140114
  Receipt Date: 20140114
  Transmission Date: 20141002
  Serious: Yes (Life-Threatening, Disabling)
  Sender: FDA-Public Use
  Company Number: None

PATIENT
  Age: 58 Year
  Sex: Male
  Weight: 55.79 kg

DRUGS (8)
  1. MOBIC [Suspect]
     Indication: PAIN
     Dosage: BY MOUTH WITH FOOD
     Dates: start: 20131119, end: 20131217
  2. MOBIC [Suspect]
     Indication: INFLAMMATION
     Dosage: BY MOUTH WITH FOOD
     Dates: start: 20131119, end: 20131217
  3. ASPIRIN [Concomitant]
  4. FOLIC ACID [Concomitant]
  5. SINGULAIR [Concomitant]
  6. LISINOPRIL [Concomitant]
  7. VENTOLIN [Concomitant]
  8. ADVIL [Concomitant]

REACTIONS (10)
  - Headache [None]
  - Muscle spasms [None]
  - Burning sensation [None]
  - Muscle spasms [None]
  - Chest pain [None]
  - Renal pain [None]
  - Flatulence [None]
  - Somnolence [None]
  - Burning feet syndrome [None]
  - Pruritus [None]
